FAERS Safety Report 5904749-0 (Version None)
Quarter: 2008Q4

REPORT INFORMATION
  Report Type: 
  Country: None (occurrence: None)
  Receive Date: 20081001
  Receipt Date: 20080919
  Transmission Date: 20090506
  Serious: Yes (Hospitalization)
  Sender: FDA-Public Use
  Company Number: HN-JNJFOC-20080905638

PATIENT
  Sex: Male

DRUGS (2)
  1. MOTRIN [Suspect]
  2. MOTRIN [Suspect]
     Indication: INFLUENZA

REACTIONS (1)
  - TOXIC EPIDERMAL NECROLYSIS [None]
